FAERS Safety Report 4598862-0 (Version None)
Quarter: 2005Q1

REPORT INFORMATION
  Report Type: 
  Country: None (occurrence: None)
  Receive Date: 20050302
  Receipt Date: 20050302
  Transmission Date: 20050727
  Serious: Yes (Death, Life-Threatening, Hospitalization)
  Sender: FDA-Public Use
  Company Number: None

PATIENT
  Age: 26 Year
  Sex: Female
  Weight: 69.8539 kg

DRUGS (11)
  1. BLEOMYCIN 15 UNITS BRISTOL-MYERS ONCOLOGY [Suspect]
     Dosage: 60 UNITS ONCE INTRAPLEUR
     Route: 034
     Dates: start: 20040206, end: 20040206
  2. METOPROLOL SR [Concomitant]
  3. DIGOXIN [Concomitant]
  4. CANDESARTAN [Concomitant]
  5. PREDNISONE [Concomitant]
  6. FOLIC ACID [Concomitant]
  7. ASPIRIN [Concomitant]
  8. MULTIVITAMIN WITH IRON [Concomitant]
  9. ALLOPURINOL [Concomitant]
  10. OCTREOTIDE [Concomitant]
  11. FUROSEMIDE [Concomitant]

REACTIONS (11)
  - BRADYCARDIA [None]
  - CARDIAC ARREST [None]
  - HAEMOPTYSIS [None]
  - HAEMOTHORAX [None]
  - LUNG DISORDER [None]
  - METABOLIC ACIDOSIS [None]
  - OXYGEN SATURATION DECREASED [None]
  - PLEURITIC PAIN [None]
  - POST PROCEDURAL COMPLICATION [None]
  - PROCEDURAL COMPLICATION [None]
  - RESPIRATORY FAILURE [None]
